FAERS Safety Report 15771040 (Version 1)
Quarter: 2018Q4

REPORT INFORMATION
  Report Type: Spontaneous
  Country: ES (occurrence: ES)
  Receive Date: 20181228
  Receipt Date: 20181228
  Transmission Date: 20190205
  Serious: Yes (Hospitalization, Other)
  Sender: FDA-Public Use
  Company Number: ES-PFIZER INC-2018524070

PATIENT
  Age: 67 Year
  Sex: Male

DRUGS (9)
  1. SUTENT [Suspect]
     Active Substance: SUNITINIB MALATE
     Indication: RENAL CANCER METASTATIC
     Dosage: 50 MG, CYCLIC
     Route: 048
     Dates: start: 20180709, end: 20180731
  2. FUROSEMIDE. [Concomitant]
     Active Substance: FUROSEMIDE
     Dosage: 40 MG, 1X/DAY
     Route: 048
  3. SUTENT [Suspect]
     Active Substance: SUNITINIB MALATE
     Dosage: 37.5 MG, CYCLIC
     Route: 048
     Dates: start: 20180822, end: 20181016
  4. ADVAGRAF [Concomitant]
     Active Substance: TACROLIMUS
     Dosage: 0.5 MG, 1X/DAY
     Route: 048
  5. HIDROFEROL [Concomitant]
     Active Substance: CALCIFEDIOL
     Dosage: 0.26 UG, MONTHLY
     Route: 048
  6. ALOPURINOL [Concomitant]
     Active Substance: ALLOPURINOL
     Dosage: 150 MG, 1X/DAY
     Route: 048
  7. URSOCHOL [Concomitant]
     Active Substance: URSODIOL
     Dosage: 150 MG, 2X/DAY (12H)
     Route: 048
  8. RANITIDINE. [Concomitant]
     Active Substance: RANITIDINE
     Dosage: 300 MG, 1X/DAY
     Route: 048
  9. MYCOPHENOLATE MOFETIL. [Concomitant]
     Active Substance: MYCOPHENOLATE MOFETIL
     Dosage: 500 MG, 2X/DAY (12H)
     Route: 048

REACTIONS (1)
  - Fournier^s gangrene [Recovered/Resolved]

NARRATIVE: CASE EVENT DATE: 20181017
